FAERS Safety Report 6361355-4 (Version None)
Quarter: 2009Q3

REPORT INFORMATION
  Report Type: 
  Country: None (occurrence: None)
  Receive Date: 20090918
  Receipt Date: 20090911
  Transmission Date: 20100115
  Serious: Yes (Hospitalization)
  Sender: FDA-Public Use
  Company Number: B0592887A

PATIENT
  Sex: Female

DRUGS (17)
  1. CLAMOXYL [Suspect]
     Route: 065
     Dates: start: 20090724, end: 20090725
  2. TARGOCID [Suspect]
     Route: 065
     Dates: start: 20090725, end: 20090729
  3. ZYVOXID [Concomitant]
     Dates: start: 20090722, end: 20090701
  4. TAZOCILLINE [Concomitant]
     Route: 065
     Dates: start: 20090722, end: 20090701
  5. CIFLOX [Concomitant]
     Indication: URINARY TRACT INFECTION
     Route: 065
     Dates: start: 20090718, end: 20090721
  6. DIPROSONE [Concomitant]
     Route: 061
     Dates: start: 20090701
  7. ROCEPHIN [Concomitant]
     Indication: SUPERINFECTION
     Dates: start: 20090601
  8. FOZITEC [Concomitant]
  9. CARDENSIEL [Concomitant]
  10. LASIX [Concomitant]
  11. KARDEGIC [Concomitant]
  12. INIPOMP [Concomitant]
  13. ALLOPURINOL [Concomitant]
  14. LEVOTHYROXINE SODIUM [Concomitant]
  15. AMLODIPINE [Concomitant]
  16. SPECIAFOLDINE [Concomitant]
  17. STILNOX [Concomitant]

REACTIONS (3)
  - CONDITION AGGRAVATED [None]
  - DRUG HYPERSENSITIVITY [None]
  - THROMBOCYTOPENIA [None]
